FAERS Safety Report 7477919-0 (Version None)
Quarter: 2011Q2

REPORT INFORMATION
  Report Type: 
  Country: None (occurrence: None)
  Receive Date: 20110513
  Receipt Date: 20110419
  Transmission Date: 20111010
  Serious: Yes (Hospitalization, Other)
  Sender: FDA-Public Use
  Company Number: US-BAYER-201039766NA

PATIENT
  Age: 34 Year
  Sex: Female
  Weight: 42.63 kg

DRUGS (18)
  1. GUAIFENESIN [Concomitant]
     Indication: PNEUMONIA
     Dosage: UNK UNK, BID
     Dates: start: 20090415
  2. TORADOL [Concomitant]
     Dosage: 60 MG, UNK
     Route: 030
     Dates: start: 20090415
  3. LODINE [Concomitant]
     Dosage: 300 MG, UNK
     Route: 048
     Dates: start: 20090415
  4. COUMADIN [Concomitant]
     Dosage: 6 UNK, UNK
     Dates: start: 20090701
  5. ASTHMA MEDICATION [Concomitant]
  6. ANTICOAGULANTS [Concomitant]
  7. GUAIFENESIN AND PSEUDOEPHEDRINE HYDROCHLORIDE [Concomitant]
  8. LEXAPRO [Concomitant]
     Dosage: 10 MG, QD
     Dates: start: 20090701
  9. YASMIN [Suspect]
     Indication: CONTRACEPTION
     Dosage: UNK
     Dates: start: 20090101, end: 20090101
  10. YAZ [Suspect]
     Indication: CONTRACEPTION
     Dosage: UNK UNK, QD
     Route: 048
     Dates: start: 20090101, end: 20090101
  11. CIPRO [Concomitant]
     Indication: PNEUMONIA
     Dosage: 500 MG, UNK
     Route: 048
     Dates: start: 20090415
  12. LOVENOX [Concomitant]
     Dosage: UNK
     Dates: start: 20090501
  13. LEVAQUIN [Concomitant]
     Indication: PNEUMONIA
     Dosage: 750 MG, UNK
     Route: 048
     Dates: start: 20090416
  14. NORCO [Concomitant]
     Dosage: UNK
     Route: 048
     Dates: start: 20090416
  15. VICODIN [Concomitant]
     Indication: PAIN
     Dosage: 500 UNK, UNK
     Route: 048
     Dates: start: 20090416
  16. ROCEPHIN [Concomitant]
     Indication: PNEUMONIA
     Dosage: UNK
     Route: 042
     Dates: start: 20090415, end: 20090415
  17. COUMADIN [Concomitant]
     Dosage: 5 MG, QD
     Dates: start: 20090501
  18. ZITHROMAX [Concomitant]
     Indication: PNEUMONIA
     Dosage: 500 MG, UNK
     Route: 048
     Dates: start: 20090415

REACTIONS (4)
  - WEIGHT DECREASED [None]
  - PAIN [None]
  - DEPRESSION [None]
  - PULMONARY EMBOLISM [None]
